FAERS Safety Report 23126548 (Version 2)
Quarter: 2023Q4

REPORT INFORMATION
  Report Type: Report from Study
  Country: AU (occurrence: AU)
  Receive Date: 20231030
  Receipt Date: 20231102
  Transmission Date: 20240110
  Serious: Yes (Hospitalization)
  Sender: FDA-Public Use
  Company Number: AU-002147023-NVSC2023AU231966

PATIENT
  Age: 67 Year
  Sex: Male

DRUGS (6)
  1. RYDAPT [Suspect]
     Active Substance: MIDOSTAURIN
     Indication: Acute myeloid leukaemia
     Dosage: 100 MG
     Route: 048
     Dates: start: 20220927, end: 20221003
  2. RYDAPT [Suspect]
     Active Substance: MIDOSTAURIN
     Dosage: UNK
     Route: 065
     Dates: start: 20221008
  3. CYTARABINE [Suspect]
     Active Substance: CYTARABINE
     Indication: Product used for unknown indication
     Dosage: 4500 MG
     Route: 042
     Dates: start: 20220920, end: 20220923
  4. APIXABAN [Concomitant]
     Active Substance: APIXABAN
     Indication: Product used for unknown indication
     Dosage: 5 MG
     Route: 048
     Dates: start: 20220822, end: 20220920
  5. PANTOPRAZOLE [Concomitant]
     Active Substance: PANTOPRAZOLE
     Indication: Product used for unknown indication
     Dosage: 80 MG, BID
     Route: 042
     Dates: start: 20221003, end: 20221007
  6. TRANSAMIC ACID [Concomitant]
     Indication: Product used for unknown indication
     Dosage: 1 G, TID
     Route: 042
     Dates: start: 20221003, end: 20221007

REACTIONS (7)
  - Large intestinal haemorrhage [Recovered/Resolved]
  - Diarrhoea [Unknown]
  - Decreased appetite [Unknown]
  - Hypotension [Unknown]
  - Respiratory rate increased [Unknown]
  - Nausea [Unknown]
  - Dizziness [Unknown]

NARRATIVE: CASE EVENT DATE: 20220930
